FAERS Safety Report 8043533-1 (Version None)
Quarter: 2012Q1

REPORT INFORMATION
  Report Type: 
  Country: None (occurrence: None)
  Receive Date: 20120112
  Receipt Date: 20120109
  Transmission Date: 20120608
  Serious: Yes (Other)
  Sender: FDA-Public Use
  Company Number: US-PFIZER INC-2011312479

PATIENT
  Age: 22 Year
  Sex: Male

DRUGS (1)
  1. GUANFACINE [Suspect]

REACTIONS (1)
  - ANAPHYLACTIC REACTION [None]
